FAERS Safety Report 16567257 (Version 1)
Quarter: 2019Q3

REPORT INFORMATION
  Report Type: Spontaneous
  Country: US (occurrence: US)
  Receive Date: 20190712
  Receipt Date: 20190712
  Transmission Date: 20191004
  Serious: Yes (Hospitalization, Other)
  Sender: FDA-Public Use
  Company Number: US-ASTRAZENECA-2019SE98789

PATIENT
  Age: 763 Month
  Sex: Female
  Weight: 76.7 kg

DRUGS (3)
  1. TUDORZA PRESSAIR [Suspect]
     Active Substance: ACLIDINIUM BROMIDE
     Indication: CHRONIC OBSTRUCTIVE PULMONARY DISEASE
     Dosage: 400MCG 2 PUFFS TWICE DAILY, TWO TIMES A DAY
     Route: 055
     Dates: start: 201804
  2. SYNTHROID [Concomitant]
     Active Substance: LEVOTHYROXINE SODIUM
     Indication: THYROID DISORDER
     Dosage: 50 MG VIAL, DAILY
     Route: 048
  3. ADVAIR HFA [Concomitant]
     Active Substance: FLUTICASONE PROPIONATE\SALMETEROL XINAFOATE
     Dosage: 500/50 MCG, 1 PUFF TWICE DAILY

REACTIONS (6)
  - Hypoaesthesia [Unknown]
  - Diabetes mellitus [Unknown]
  - Bladder pain [Unknown]
  - Spinal pain [Unknown]
  - Spinal fracture [Unknown]
  - Device issue [Unknown]

NARRATIVE: CASE EVENT DATE: 201905
